FAERS Safety Report 7050603-3 (Version None)
Quarter: 2010Q4

REPORT INFORMATION
  Report Type: 
  Country: None (occurrence: None)
  Receive Date: 20101018
  Receipt Date: 20101007
  Transmission Date: 20110411
  Serious: Yes (Other)
  Sender: FDA-Public Use
  Company Number: US-ELI_LILLY_AND_COMPANY-US201002004005

PATIENT
  Sex: Female
  Weight: 111.57 kg

DRUGS (6)
  1. BYETTA [Suspect]
     Dosage: UNK, UNKNOWN
     Route: 065
     Dates: start: 20080901, end: 20090401
  2. DIAZEPAM [Concomitant]
     Indication: NERVOUSNESS
     Dates: start: 20000101
  3. ALPRAZOLAM [Concomitant]
  4. ATENOLOL [Concomitant]
     Indication: HYPERTENSION
     Dosage: UNK, UNK
     Dates: start: 20050101
  5. TYLENOL (CAPLET) [Concomitant]
     Indication: PAIN
     Dosage: UNK, AS NEEDED
     Dates: start: 20000101
  6. AMBIEN [Concomitant]
     Indication: INSOMNIA
     Dates: start: 20000101

REACTIONS (6)
  - BACK PAIN [None]
  - DIARRHOEA [None]
  - GASTROINTESTINAL DISORDER [None]
  - NAUSEA [None]
  - PANCREATITIS [None]
  - VOMITING [None]
